FAERS Safety Report 8554235-7 (Version None)
Quarter: 2012Q3

REPORT INFORMATION
  Report Type: 
  Country: None (occurrence: None)
  Receive Date: 20120731
  Receipt Date: 20120203
  Transmission Date: 20120928
  Serious: Yes (Hospitalization, Other)
  Sender: FDA-Public Use
  Company Number: US-009507513-2009-200460-NL

PATIENT

DRUGS (7)
  1. TOPAMAX [Concomitant]
     Indication: MIGRAINE
     Dosage: 50 MG, QD
     Route: 048
     Dates: start: 20070101
  2. NUVARING [Suspect]
     Indication: PREMENSTRUAL SYNDROME
  3. PRILOSEC [Concomitant]
     Indication: GASTROOESOPHAGEAL REFLUX DISEASE
     Dosage: PRN
     Route: 048
  4. NUVARING [Suspect]
     Indication: MENORRHAGIA
  5. CLARITIN [Concomitant]
     Indication: PRODUCT USED FOR UNKNOWN INDICATION
     Dosage: 10 MG, PRN
  6. NUVARING [Suspect]
     Indication: CONTRACEPTION
     Dosage: CONTINUING: NO
     Route: 067
     Dates: start: 20071218, end: 20080801
  7. ZOLOFT [Concomitant]
     Indication: DEPRESSION
     Dosage: 25 MG, QD
     Route: 048
     Dates: start: 20040201, end: 20071201

REACTIONS (13)
  - CERVICAL DYSPLASIA [None]
  - CHEST PAIN [None]
  - VULVA CYST [None]
  - DEEP VEIN THROMBOSIS [None]
  - THROMBOPHLEBITIS [None]
  - PHOTOREFRACTIVE KERATECTOMY [None]
  - HIDRADENITIS [None]
  - PAIN IN EXTREMITY [None]
  - UTERINE LEIOMYOMA [None]
  - OEDEMA PERIPHERAL [None]
  - DEPRESSION [None]
  - ACUTE SINUSITIS [None]
  - OFF LABEL USE [None]
